FAERS Safety Report 23336254 (Version 1)
Quarter: 2023Q4

REPORT INFORMATION
  Report Type: Report from Study
  Country: CO (occurrence: CO)
  Receive Date: 20231225
  Receipt Date: 20231225
  Transmission Date: 20240109
  Serious: Yes (Other)
  Sender: FDA-Public Use
  Company Number: CO-BAYER-2023A181904

PATIENT
  Sex: Female

DRUGS (1)
  1. VENTAVIS [Suspect]
     Active Substance: ILOPROST
     Indication: Pulmonary arterial hypertension
     Dosage: 6 NEBULISATIONS PER DAY
     Route: 055
     Dates: start: 20190906

REACTIONS (3)
  - Asphyxia [Unknown]
  - Dyspnoea [Unknown]
  - Agitation [Unknown]
